FAERS Safety Report 12488264 (Version 1)
Quarter: 2016Q2

REPORT INFORMATION
  Report Type: Spontaneous
  Country: GB (occurrence: GB)
  Receive Date: 20160622
  Receipt Date: 20160622
  Transmission Date: 20160815
  Serious: Yes (Other)
  Sender: FDA-Public Use
  Company Number: GB-GLAXOSMITHKLINE-B0359782A

PATIENT
  Age: 29 Year
  Sex: Male

DRUGS (14)
  1. PAROXETINE HYDROCHLORIDE. [Suspect]
     Active Substance: PAROXETINE HYDROCHLORIDE
     Dosage: 7 MG, QD
     Route: 065
     Dates: start: 20061010, end: 20070315
  2. ALCOHOL. [Suspect]
     Active Substance: ALCOHOL
     Indication: PRODUCT USED FOR UNKNOWN INDICATION
  3. DIAZEPAM. [Concomitant]
     Active Substance: DIAZEPAM
     Indication: PRODUCT USED FOR UNKNOWN INDICATION
     Dates: start: 19991021
  4. ZOPICLONE [Concomitant]
     Active Substance: ZOPICLONE
     Indication: INSOMNIA
  5. PERICYAZINE [Concomitant]
     Active Substance: PERICIAZINE
     Indication: PRODUCT USED FOR UNKNOWN INDICATION
  6. SEROXAT [Suspect]
     Active Substance: PAROXETINE HYDROCHLORIDE
     Dosage: 4 MG, UNK
     Route: 065
  7. PAROXETINE. [Suspect]
     Active Substance: PAROXETINE
     Dosage: 2X5 ML SPOON DAILY AS DOSE DESCRIPTION
     Route: 065
     Dates: start: 20050621, end: 20060619
  8. STELAZINE [Concomitant]
     Active Substance: TRIFLUOPERAZINE HYDROCHLORIDE
     Indication: PRODUCT USED FOR UNKNOWN INDICATION
  9. DOTHIEPIN [Suspect]
     Active Substance: DOTHIEPIN\DOTHIEPIN HYDROCHLORIDE
     Indication: PRODUCT USED FOR UNKNOWN INDICATION
     Dosage: UNK
  10. DIAZEPAM. [Concomitant]
     Active Substance: DIAZEPAM
     Indication: PRODUCT USED FOR UNKNOWN INDICATION
  11. SEROXAT [Suspect]
     Active Substance: PAROXETINE HYDROCHLORIDE
     Indication: PRODUCT USED FOR UNKNOWN INDICATION
     Dosage: UNK
     Route: 065
     Dates: start: 20010702, end: 200706
  12. PAROXETINE HYDROCHLORIDE. [Suspect]
     Active Substance: PAROXETINE HYDROCHLORIDE
     Indication: PRODUCT USED FOR UNKNOWN INDICATION
     Dosage: UNK
     Route: 065
     Dates: start: 20010702, end: 20060710
  13. LORAZEPAM. [Concomitant]
     Active Substance: LORAZEPAM
     Indication: PRODUCT USED FOR UNKNOWN INDICATION
     Dates: start: 20041203
  14. PAROXETINE. [Suspect]
     Active Substance: PAROXETINE
     Indication: PRODUCT USED FOR UNKNOWN INDICATION
     Dosage: UNK
     Route: 065
     Dates: start: 20061010, end: 20070315

REACTIONS (55)
  - Suicidal behaviour [Unknown]
  - Drug withdrawal syndrome [Unknown]
  - Paranoia [Unknown]
  - Influenza like illness [Unknown]
  - Balance disorder [Unknown]
  - Paraesthesia [Unknown]
  - Affect lability [Unknown]
  - Dyskinesia [Unknown]
  - Feeling jittery [Unknown]
  - Muscle spasms [Unknown]
  - Vomiting [Unknown]
  - Agitation [Unknown]
  - Restless legs syndrome [Unknown]
  - Dysarthria [Unknown]
  - Hangover [Unknown]
  - Anger [Unknown]
  - Mania [Unknown]
  - Emotional disorder [Unknown]
  - Headache [Unknown]
  - Chest pain [Unknown]
  - Suicidal ideation [Unknown]
  - Aggression [Unknown]
  - Overdose [Unknown]
  - Insomnia [Unknown]
  - Nausea [Unknown]
  - Mood swings [Unknown]
  - Tearfulness [Unknown]
  - Disturbance in attention [Unknown]
  - Depressed mood [Unknown]
  - Depression [Unknown]
  - Dissociation [Unknown]
  - Nervousness [Unknown]
  - Fatigue [Unknown]
  - Abdominal pain [Unknown]
  - Euphoric mood [Unknown]
  - Vision blurred [Unknown]
  - Tension [Unknown]
  - Gastric disorder [Unknown]
  - Dry mouth [Unknown]
  - Irritability [Unknown]
  - Hypersomnia [Unknown]
  - Feeling of despair [Unknown]
  - Abnormal dreams [Unknown]
  - Memory impairment [Unknown]
  - Night sweats [Unknown]
  - Diarrhoea [Unknown]
  - Tremor [Unknown]
  - Hyperhidrosis [Unknown]
  - Hypoaesthesia [Unknown]
  - Palpitations [Unknown]
  - Confusional state [Unknown]
  - Appetite disorder [Unknown]
  - Anxiety [Unknown]
  - Weight fluctuation [Unknown]
  - Hyperchlorhydria [Unknown]

NARRATIVE: CASE EVENT DATE: 20010804
